FAERS Safety Report 9397158 (Version 3)
Quarter: 2013Q3

REPORT INFORMATION
  Report Type: Report from Study
  Country: IN (occurrence: IN)
  Receive Date: 20130712
  Receipt Date: 20130812
  Transmission Date: 20140515
  Serious: Yes (Hospitalization, Other)
  Sender: FDA-Public Use
  Company Number: PHHY2013IN073374

PATIENT
  Age: 74 Year
  Sex: Female

DRUGS (18)
  1. ACLASTA [Suspect]
     Indication: OSTEOPOROTIC FRACTURE
     Dosage: UNK UKN, UNK
     Route: 042
  2. PANTOCID (PANTOPRAZOLE SODIUM) [Concomitant]
     Dosage: 40 MG, UNK
  3. NORMAL SALINE [Concomitant]
     Dosage: 500 ML, UNK
  4. ELDERVIT [Concomitant]
     Dosage: UNK UKN, UNK
  5. ETOVA [Concomitant]
     Dosage: 600 MG, UNK
     Dates: start: 20130624
  6. GABANEURON [Concomitant]
     Dosage: UNK UKN, UNK
     Dates: start: 20130624
  7. SUPECEF [Concomitant]
     Dosage: 1.5 G, UNK
  8. LEVOFLOX [Concomitant]
     Dosage: 500 MG, UNK
     Dates: start: 20130624
  9. EMESET [Concomitant]
     Dosage: 4 MG, UNK
     Dates: start: 20130624
  10. VOLINI [Concomitant]
     Dosage: 30 G, UNK
     Dates: start: 20130624
  11. PERFALGAN [Concomitant]
     Dosage: 100 ML, UNK
     Dates: start: 20130619
  12. TRAMAZAC [Concomitant]
     Dosage: 50 MG, UNK
     Dates: start: 20130619
  13. AMICIN [Concomitant]
     Dosage: 500 MG, UNK
     Dates: start: 20130621
  14. RINGER LACTATE [Concomitant]
     Dosage: 500 ML, UNK
     Dates: start: 20130621
  15. DICLOFENAC [Concomitant]
     Dosage: UNK UKN, UNK
  16. TRAMADOL [Concomitant]
     Dosage: UNK UKN, UNK
  17. GLYCOPYRROLATE [Concomitant]
     Dosage: UNK UKN, UNK
  18. MEDIZOLAM [Concomitant]
     Dosage: UNK UKN, UNK

REACTIONS (11)
  - Femur fracture [Unknown]
  - Abasia [Unknown]
  - Arthralgia [Unknown]
  - Fall [Unknown]
  - C-reactive protein increased [Unknown]
  - Lymphocyte count decreased [Unknown]
  - Heart rate increased [Unknown]
  - Neutrophil count increased [Unknown]
  - Red blood cell count decreased [Unknown]
  - Haemoglobin decreased [Unknown]
  - Haematocrit decreased [Unknown]
